FAERS Safety Report 4512111-0 (Version None)
Quarter: 2004Q4

REPORT INFORMATION
  Report Type: 
  Country: None (occurrence: None)
  Receive Date: 20041123
  Receipt Date: 20041109
  Transmission Date: 20050328
  Serious: Yes (Death)
  Sender: FDA-Public Use
  Company Number: 02100-JPN-04-0279

PATIENT
  Age: 86 Year
  Sex: Male

DRUGS (7)
  1. CILOSTAZOL [Suspect]
     Indication: CEREBRAL INFARCTION
     Dosage: 200 MG ORAL
     Route: 048
     Dates: start: 20040412, end: 20040705
  2. AMANTADINE HCL [Concomitant]
  3. FAMOTIDINE [Concomitant]
  4. MAGNESIUM OXIDE [Concomitant]
  5. SENNOSIDE [Concomitant]
  6. NITROGLYCERIN [Concomitant]
  7. TIAPRIDE HYDROCHLORIDE [Concomitant]

REACTIONS (16)
  - AORTIC ANEURYSM [None]
  - AORTIC ANEURYSM RUPTURE [None]
  - BLOOD BILIRUBIN INCREASED [None]
  - BLOOD LACTATE DEHYDROGENASE INCREASED [None]
  - BLOOD PRESSURE FLUCTUATION [None]
  - CARDIO-RESPIRATORY ARREST [None]
  - DECREASED APPETITE [None]
  - DEHYDRATION [None]
  - ELECTROCARDIOGRAM ST SEGMENT DEPRESSION [None]
  - ELECTROCARDIOGRAM T WAVE INVERSION [None]
  - RENAL IMPAIRMENT [None]
  - RESUSCITATION [None]
  - SOMNOLENCE [None]
  - SUDDEN DEATH [None]
  - SUPRAVENTRICULAR EXTRASYSTOLES [None]
  - URINARY TRACT INFECTION [None]
